FAERS Safety Report 7336581-8 (Version None)
Quarter: 2011Q1

REPORT INFORMATION
  Report Type: 
  Country: None (occurrence: None)
  Receive Date: 20110307
  Receipt Date: 20110225
  Transmission Date: 20110831
  Serious: Yes (Other)
  Sender: FDA-Public Use
  Company Number: US-MERCK-1009USA00403

PATIENT
  Age: 61 Year
  Sex: Male
  Weight: 109 kg

DRUGS (9)
  1. FOSAMAX [Suspect]
     Indication: PROSTATE CANCER
     Route: 048
     Dates: start: 20050101, end: 20090331
  2. FOSAMAX [Suspect]
     Route: 048
     Dates: start: 20050801, end: 20090301
  3. GLYBURIDE [Concomitant]
     Indication: TYPE 2 DIABETES MELLITUS
     Route: 065
  4. CALCIUM (UNSPECIFIED) [Concomitant]
     Route: 065
  5. VITAMINS (UNSPECIFIED) [Concomitant]
     Route: 065
  6. ASPIRIN [Concomitant]
     Route: 065
  7. FOSAMAX [Suspect]
     Route: 048
     Dates: start: 20050801, end: 20090301
  8. AMLODIPINE [Concomitant]
     Indication: HYPERTENSION
     Route: 065
  9. FOSAMAX [Suspect]
     Indication: OSTEOPOROSIS PROPHYLAXIS
     Route: 048
     Dates: start: 20050101, end: 20090331

REACTIONS (8)
  - OSTEONECROSIS OF JAW [None]
  - LARYNGEAL CANCER [None]
  - BRONCHITIS [None]
  - IMMUNE SYSTEM DISORDER [None]
  - IMPAIRED HEALING [None]
  - EPIGLOTTIC CARCINOMA [None]
  - INCREASED TENDENCY TO BRUISE [None]
  - BLOOD CHOLESTEROL INCREASED [None]
